FAERS Safety Report 5841676-1 (Version None)
Quarter: 2008Q3

REPORT INFORMATION
  Report Type: 
  Country: None (occurrence: None)
  Receive Date: 20080812
  Receipt Date: 20080806
  Transmission Date: 20090109
  Serious: Yes (Hospitalization)
  Sender: FDA-Public Use
  Company Number: FR-AVENTIS-200814050EU

PATIENT
  Age: 76 Year
  Sex: Female

DRUGS (7)
  1. FLUDEX                             /00340101/ [Suspect]
     Indication: HYPERTENSION
     Route: 048
     Dates: start: 20080419, end: 20080506
  2. PREVISCAN                          /00261401/ [Concomitant]
     Dosage: DOSE: UNK
  3. CORDARONE [Concomitant]
     Dosage: DOSE: UNK
  4. COVERSYL                           /00790701/ [Concomitant]
     Dosage: DOSE: UNK
  5. ZYPREXA [Concomitant]
     Dosage: DOSE: UNK
  6. AMLODIPINE [Concomitant]
     Dosage: DOSE: UNK
  7. TEMERIT [Concomitant]
     Dosage: DOSE: UNK

REACTIONS (2)
  - HYPOKALAEMIA [None]
  - METABOLIC ALKALOSIS [None]
